FAERS Safety Report 16187449 (Version 1)
Quarter: 2019Q2

REPORT INFORMATION
  Report Type: Spontaneous
  Country: GB (occurrence: GB)
  Receive Date: 20190412
  Receipt Date: 20190412
  Transmission Date: 20190711
  Serious: Yes (Life-Threatening, Hospitalization, Disabling)
  Sender: FDA-Public Use
  Company Number: GB-ALKEM LABORATORIES LIMITED-GB-ALKEM-2018-05213

PATIENT
  Age: 46 Year
  Sex: Female

DRUGS (5)
  1. MIRTAZAPINE. [Suspect]
     Active Substance: MIRTAZAPINE
     Indication: ANXIETY
     Dosage: 30 MG, OD AT NIGHT
     Route: 048
     Dates: start: 2017, end: 20180328
  2. DIAZEPAM. [Concomitant]
     Active Substance: DIAZEPAM
     Indication: PRODUCT USED FOR UNKNOWN INDICATION
     Dosage: 15 MG, OD MORNING, LUNCH AND NIGHT
     Route: 065
  3. PROCYCLIDINE [Concomitant]
     Active Substance: PROCYCLIDINE
     Indication: PRODUCT USED FOR UNKNOWN INDICATION
     Dosage: 10 MG, OD
     Route: 065
  4. QUETIAPINE FUMARATE. [Suspect]
     Active Substance: QUETIAPINE FUMARATE
     Indication: ANXIETY DISORDER
     Dosage: 50 MG, OD MORNING AND NIGHT.
     Route: 048
     Dates: start: 201712, end: 20180328
  5. LORAZEPAM. [Concomitant]
     Active Substance: LORAZEPAM
     Indication: PRODUCT USED FOR UNKNOWN INDICATION
     Dosage: 1 MG, PRN
     Route: 065

REACTIONS (1)
  - Neuroleptic malignant syndrome [Recovering/Resolving]

NARRATIVE: CASE EVENT DATE: 201803
